FAERS Safety Report 7407909-5 (Version None)
Quarter: 2011Q2

REPORT INFORMATION
  Report Type: 
  Country: None (occurrence: None)
  Receive Date: 20110412
  Receipt Date: 20110407
  Transmission Date: 20111010
  Serious: No
  Sender: FDA-Public Use
  Company Number: US-PFIZER INC-2011077427

PATIENT
  Sex: Female
  Weight: 53 kg

DRUGS (1)
  1. ALPRAZOLAM [Suspect]
     Indication: ANXIETY
     Dosage: 0.5 MG DAILY
     Route: 048

REACTIONS (2)
  - CYSTITIS [None]
  - DYSPEPSIA [None]
